FAERS Safety Report 22714052 (Version 2)
Quarter: 2024Q1

REPORT INFORMATION
  Report Type: Report from Study
  Country: US (occurrence: US)
  Receive Date: 20230718
  Receipt Date: 20240308
  Transmission Date: 20240409
  Serious: Yes (Hospitalization, Other)
  Sender: FDA-Public Use
  Company Number: US-ABBVIE-4339945

PATIENT
  Sex: Female

DRUGS (2)
  1. HUMIRA [Suspect]
     Active Substance: ADALIMUMAB
     Indication: Colitis ulcerative
     Route: 058
  2. HUMIRA [Suspect]
     Active Substance: ADALIMUMAB
     Route: 058

REACTIONS (8)
  - Spinal decompression [Not Recovered/Not Resolved]
  - Cyst [Unknown]
  - Postoperative adhesion [Not Recovered/Not Resolved]
  - Vascular occlusion [Not Recovered/Not Resolved]
  - Hypoaesthesia [Unknown]
  - Malaise [Not Recovered/Not Resolved]
  - Pain [Unknown]
  - Craniotomy [Unknown]

NARRATIVE: CASE EVENT DATE: 20180101
